FAERS Safety Report 5104781-3 (Version None)
Quarter: 2006Q3

REPORT INFORMATION
  Report Type: 
  Country: None (occurrence: None)
  Receive Date: 20060914
  Receipt Date: 20060905
  Transmission Date: 20061208
  Serious: Yes (Death)
  Sender: FDA-Public Use
  Company Number: US-JNJFOC-20060902672

PATIENT
  Age: 40 Year
  Sex: Male
  Weight: 113.4 kg

DRUGS (2)
  1. CYCLOBENZAPRINE HCL [Suspect]
     Indication: SUICIDE ATTEMPT
  2. ACETAMINOPHEN AND HYDROCODONE BITARTRATE [Suspect]
     Indication: SUICIDE ATTEMPT

REACTIONS (2)
  - COMPLETED SUICIDE [None]
  - INTENTIONAL OVERDOSE [None]
